FAERS Safety Report 18359139 (Version 1)
Quarter: 2020Q4

REPORT INFORMATION
  Report Type: Spontaneous
  Country: US (occurrence: US)
  Receive Date: 20201008
  Receipt Date: 20201008
  Transmission Date: 20210114
  Serious: Yes (Hospitalization, Other)
  Sender: FDA-Public Use
  Company Number: US-INDIVIOR EUROPE LIMITED-INDV-123151-2020

PATIENT
  Sex: Female

DRUGS (2)
  1. SUBUTEX [Suspect]
     Active Substance: BUPRENORPHINE HYDROCHLORIDE
     Indication: PRODUCT USED FOR UNKNOWN INDICATION
     Dosage: 2 MILLIGRAM, UNKNOWN
     Route: 060
  2. SUBUTEX [Suspect]
     Active Substance: BUPRENORPHINE HYDROCHLORIDE
     Dosage: UNK (WEANING OFF)
     Route: 060

REACTIONS (7)
  - Intentional underdose [Recovered/Resolved]
  - Drug withdrawal syndrome [Unknown]
  - Hepatic function abnormal [Unknown]
  - Dizziness [Unknown]
  - Anxiety [Unknown]
  - Mental impairment [Unknown]
  - Impaired driving ability [Unknown]
